FAERS Safety Report 15229221 (Version 2)
Quarter: 2018Q3

REPORT INFORMATION
  Report Type: Report from Study
  Country: CA (occurrence: CA)
  Receive Date: 20180801
  Receipt Date: 20180820
  Transmission Date: 20181010
  Serious: Yes (Other)
  Sender: FDA-Public Use
  Company Number: CA-TAKEDA-2018TUS018677

PATIENT
  Age: 27 Year
  Sex: Female
  Weight: 83 kg

DRUGS (2)
  1. PREDNISONE. [Concomitant]
     Active Substance: PREDNISONE
     Dosage: UNK
  2. VEDOLIZUMAB [Suspect]
     Active Substance: VEDOLIZUMAB
     Indication: COLITIS ULCERATIVE
     Dosage: 300 MG, UNK
     Route: 042
     Dates: start: 20161122

REACTIONS (4)
  - Poor venous access [Unknown]
  - Infusion site extravasation [Unknown]
  - Multiple sclerosis [Unknown]
  - Nervousness [Unknown]

NARRATIVE: CASE EVENT DATE: 20180520
